FAERS Safety Report 6022047-4 (Version None)
Quarter: 2008Q4

REPORT INFORMATION
  Report Type: 
  Country: None (occurrence: None)
  Receive Date: 20081229
  Receipt Date: 20081223
  Transmission Date: 20090506
  Serious: Yes (Other)
  Sender: FDA-Public Use
  Company Number: IE-ASTRAZENECA-2008GB02334

PATIENT
  Sex: Female

DRUGS (7)
  1. CRESTOR [Suspect]
     Indication: HYPERCHOLESTEROLAEMIA
     Route: 048
  2. CRESTOR [Suspect]
     Route: 048
  3. NU-SEALS [Concomitant]
  4. DIFENE [Concomitant]
  5. SOLPADOL CAPLETS [Concomitant]
  6. IMODIUM [Concomitant]
  7. PARALIEF [Concomitant]
     Dosage: 500 MG

REACTIONS (1)
  - POST HERPETIC NEURALGIA [None]
